FAERS Safety Report 6961155-8 (Version None)
Quarter: 2010Q3

REPORT INFORMATION
  Report Type: 
  Country: None (occurrence: None)
  Receive Date: 20100901
  Receipt Date: 20100525
  Transmission Date: 20110219
  Serious: Yes (Other)
  Sender: FDA-Public Use
  Company Number: IT-TEVA-235801ISR

PATIENT
  Sex: Male

DRUGS (1)
  1. FLUOROURACIL [Suspect]

REACTIONS (1)
  - ATRIAL FIBRILLATION [None]
